FAERS Safety Report 5950695-6 (Version None)
Quarter: 2008Q4

REPORT INFORMATION
  Report Type: 
  Country: None (occurrence: None)
  Receive Date: 20081112
  Receipt Date: 20081031
  Transmission Date: 20090506
  Serious: Yes (Hospitalization)
  Sender: FDA-Public Use
  Company Number: FR-SANOFI-SYNTHELABO-A02200801931

PATIENT
  Sex: Male

DRUGS (9)
  1. NORSET [Suspect]
     Indication: DEPRESSION
     Route: 048
     Dates: start: 20080125
  2. AMOXICILLIN TRIHYDRATE [Suspect]
     Indication: INFECTION
     Route: 048
     Dates: start: 20080328, end: 20080403
  3. RIVOTRIL [Suspect]
     Indication: EPILEPSY
     Dosage: 8 MG THEN 1 MG
     Route: 048
     Dates: start: 20080326
  4. LEPONEX [Suspect]
     Indication: SCHIZOPHRENIA
     Dosage: 150 TO 250 MG DAILY
     Route: 048
     Dates: start: 20080326
  5. ATARAX [Suspect]
     Indication: ANXIETY
     Route: 048
     Dates: start: 20080326, end: 20080401
  6. LEVOTHYROX [Suspect]
     Indication: HYPOTHYROIDISM
     Route: 048
     Dates: start: 20071224
  7. LEPTICUR [Suspect]
     Indication: PARKINSONISM
     Route: 048
     Dates: start: 20080225
  8. XATRAL [Suspect]
     Indication: BENIGN PROSTATIC HYPERPLASIA
     Route: 048
     Dates: start: 20080207, end: 20080401
  9. DOLIPRANE [Suspect]
     Indication: DRUG USE FOR UNKNOWN INDICATION
     Dosage: 4 G
     Route: 048
     Dates: start: 20080328

REACTIONS (1)
  - EOSINOPHILIA [None]
